FAERS Safety Report 22154922 (Version 1)
Quarter: 2023Q1

REPORT INFORMATION
  Report Type: Spontaneous
  Country: CZ (occurrence: CZ)
  Receive Date: 20230330
  Receipt Date: 20230330
  Transmission Date: 20230417
  Serious: Yes (Life-Threatening, Hospitalization, Other)
  Sender: FDA-Public Use
  Company Number: CZ-CZSUKL-23000926

PATIENT
  Age: 82 Year
  Sex: Female

DRUGS (1)
  1. ACETAMINOPHEN [Suspect]
     Active Substance: ACETAMINOPHEN
     Indication: Product used for unknown indication
     Dosage: 12500 MILLIGRAM
     Route: 065
     Dates: start: 20201121, end: 20201121

REACTIONS (2)
  - Suicide attempt [Unknown]
  - Intentional overdose [Unknown]

NARRATIVE: CASE EVENT DATE: 20201121
